FAERS Safety Report 6811149-8 (Version None)
Quarter: 2010Q2

REPORT INFORMATION
  Report Type: 
  Country: None (occurrence: None)
  Receive Date: 20100630
  Receipt Date: 20100621
  Transmission Date: 20101027
  Serious: Yes (Death)
  Sender: FDA-Public Use
  Company Number: US-AMGEN-QUU413200

PATIENT
  Sex: Male
  Weight: 86.3 kg

DRUGS (4)
  1. NPLATE [Suspect]
     Indication: IDIOPATHIC THROMBOCYTOPENIC PURPURA
     Route: 058
     Dates: start: 20100430, end: 20100430
  2. CORTICOSTEROIDS [Concomitant]
     Dates: start: 20100301
  3. DANAZOL [Concomitant]
     Dates: start: 20100201
  4. RITUXIMAB [Concomitant]
     Dates: start: 20100419

REACTIONS (5)
  - ACUTE MYELOID LEUKAEMIA [None]
  - CHRONIC LYMPHOCYTIC LEUKAEMIA [None]
  - MYELODYSPLASTIC SYNDROME [None]
  - NON-HODGKIN'S LYMPHOMA [None]
  - RENAL FAILURE ACUTE [None]
